FAERS Safety Report 8426587-X (Version None)
Quarter: 2012Q2

REPORT INFORMATION
  Report Type: 
  Country: None (occurrence: None)
  Receive Date: 20120604
  Receipt Date: 20120604
  Transmission Date: 20120825
  Serious: Yes (Death, Hospitalization)
  Sender: FDA-Public Use
  Company Number: None

PATIENT
  Age: 94 Year
  Sex: Female

DRUGS (7)
  1. ENALAPRIL MALEATE [Suspect]
     Indication: HYPERTENSION
     Dosage: (5 MG QD ORAL)
     Route: 048
     Dates: start: 20100101, end: 20100917
  2. AMILORIDE HCL AND HYDROCHLOROTHIAZIDE [Suspect]
     Indication: HYPERTENSION
     Dosage: (5/50 MG QD ORAL)
     Route: 048
     Dates: start: 20100101, end: 20100917
  3. BOI-K ASPARTICO (BOI K ASPARTICO-ASCORBIC ACID/ASPARTIC ACID/POTASSIUM [Suspect]
     Indication: PRODUCT USED FOR UNKNOWN INDICATION
     Dosage: (2502.5/500/350 MG 1 DOSE DAILY ORAL)
     Route: 048
     Dates: start: 20100101, end: 20100917
  4. DIGOXIN [Suspect]
     Indication: ATRIAL FIBRILLATION
     Dosage: (0.12 MG/5XW ORAL)
     Route: 048
     Dates: start: 20100101, end: 20100917
  5. FUROSEMIDE [Suspect]
     Indication: CARDIAC FAILURE
     Dosage: (60 MG QD ORAL)
     Route: 048
     Dates: start: 20100101, end: 20100917
  6. ALLOPURINOL [Suspect]
     Indication: PRODUCT USED FOR UNKNOWN INDICATION
     Dosage: (100 MG QD ORAL)
     Route: 048
     Dates: start: 20100101, end: 20100917
  7. ASPIRIN [Suspect]
     Indication: PRODUCT USED FOR UNKNOWN INDICATION
     Dosage: (100 MG QD ORAL)
     Route: 048
     Dates: start: 20100101, end: 20100917

REACTIONS (9)
  - ATRIAL FIBRILLATION [None]
  - HYPOPHOSPHATAEMIA [None]
  - HYPOCALCAEMIA [None]
  - RENAL FAILURE [None]
  - GENERAL PHYSICAL HEALTH DETERIORATION [None]
  - TOXICITY TO VARIOUS AGENTS [None]
  - HYPERNATRAEMIA [None]
  - ARRHYTHMIA [None]
  - URINARY TRACT INFECTION [None]
